FAERS Safety Report 9683369 (Version 3)
Quarter: 2014Q2

REPORT INFORMATION
  Report Type: Spontaneous
  Country: US (occurrence: US)
  Receive Date: 20131112
  Receipt Date: 20140515
  Transmission Date: 20141212
  Serious: Yes (Other)
  Sender: FDA-Public Use
  Company Number: US-PFIZER INC-2013320213

PATIENT
  Age: 66 Year
  Sex: Female
  Weight: 73.02 kg

DRUGS (6)
  1. SUTENT [Suspect]
     Indication: MALIGNANT NEOPLASM OF RENAL PELVIS
     Dosage: 50 MG, DAILY X 2 WEEKS
     Route: 048
     Dates: start: 20130911
  2. SUTENT [Suspect]
     Indication: BRAIN NEOPLASM MALIGNANT
     Dosage: 50 MG, CYCLIC (DAILY 2 WEEKS ON 1 WEEK OFF)
     Route: 048
     Dates: start: 20131112
  3. ONDANSETRON [Concomitant]
     Dosage: UNK
  4. FAMOTIDINE [Concomitant]
     Dosage: UNK
  5. XARELTO [Concomitant]
     Dosage: UNK
  6. METHYLPREDNISOLONE [Concomitant]
     Dosage: UNK

REACTIONS (7)
  - Nausea [Unknown]
  - Fatigue [Unknown]
  - Skin lesion [Unknown]
  - Pain in extremity [Unknown]
  - Eyelid oedema [Unknown]
  - Acne [Unknown]
  - Stomatitis [Unknown]
